FAERS Safety Report 7495104-3 (Version None)
Quarter: 2011Q2

REPORT INFORMATION
  Report Type: 
  Country: None (occurrence: None)
  Receive Date: 20110520
  Receipt Date: 20110511
  Transmission Date: 20111010
  Serious: Yes (Other)
  Sender: FDA-Public Use
  Company Number: DE-ELI_LILLY_AND_COMPANY-DE201102006338

PATIENT
  Age: 80 Year
  Sex: Male

DRUGS (8)
  1. RISPERIDON [Concomitant]
     Dosage: 1 MG, UNKNOWN
     Route: 065
  2. HYDROCHLOROTHIAZIDE [Concomitant]
     Dosage: UNK, UNKNOWN
     Route: 065
  3. CALCIMAGON [Concomitant]
     Dosage: UNK, UNKNOWN
     Route: 065
  4. BISOPROLOL FUMARATE [Concomitant]
     Dosage: 5 MG, UNKNOWN
     Route: 065
  5. TILIDIN [Concomitant]
     Dosage: UNK, UNKNOWN
     Route: 065
  6. DEKRISTOL [Concomitant]
     Dosage: UNK, UNKNOWN
     Route: 065
  7. FORTEO [Suspect]
     Indication: OSTEOPOROSIS
     Dosage: UNK, UNKNOWN
     Route: 058
     Dates: start: 20110202, end: 20110223
  8. NOVALGIN [Concomitant]
     Dosage: UNK, UNKNOWN
     Route: 065

REACTIONS (2)
  - INTERNATIONAL NORMALISED RATIO INCREASED [None]
  - PROTHROMBIN TIME PROLONGED [None]
